FAERS Safety Report 9767347 (Version 1)
Quarter: 2013Q4

REPORT INFORMATION
  Report Type: Report from Study
  Country: JP (occurrence: JP)
  Receive Date: 20131217
  Receipt Date: 20131217
  Transmission Date: 20140711
  Serious: Yes (Hospitalization)
  Sender: FDA-Public Use
  Company Number: JP-JNJFOC-20131206464

PATIENT
  Age: 88 Year
  Sex: Female
  Weight: 50 kg

DRUGS (12)
  1. XARELTO [Suspect]
     Indication: ATRIAL FIBRILLATION
     Route: 048
     Dates: start: 20130517
  2. XARELTO [Suspect]
     Indication: THROMBOSIS PROPHYLAXIS
     Route: 048
     Dates: start: 20130517
  3. XARELTO [Suspect]
     Indication: CEREBROVASCULAR ACCIDENT PROPHYLAXIS
     Route: 048
     Dates: start: 20130517
  4. RABEPRAZOLE SODIUM [Concomitant]
     Route: 048
  5. LOSARTAN POTASSIUM [Concomitant]
     Route: 048
  6. PIETENALE [Concomitant]
     Route: 048
  7. THEODUR [Concomitant]
     Route: 048
  8. CIBENOL [Concomitant]
     Route: 048
  9. CRESTOR [Concomitant]
     Route: 048
  10. BONOTEO [Concomitant]
     Route: 048
  11. ATELEC [Concomitant]
     Route: 048
  12. AMLODIPINE [Concomitant]
     Route: 048

REACTIONS (1)
  - Chondrocalcinosis pyrophosphate [Recovering/Resolving]
